FAERS Safety Report 17430324 (Version 1)
Quarter: 2020Q1

REPORT INFORMATION
  Report Type: Spontaneous
  Country: US (occurrence: US)
  Receive Date: 20200215
  Receipt Date: 20200215
  Transmission Date: 20200409
  Serious: Yes (Life-Threatening)
  Sender: FDA-Public Use
  Company Number: None

PATIENT
  Age: 37 Year
  Sex: Female
  Weight: 65.25 kg

DRUGS (2)
  1. GABAPENTIN. [Suspect]
     Active Substance: GABAPENTIN
     Indication: ANXIETY
     Dosage: ?          QUANTITY:1 CAPSULE(S);?
     Route: 048
     Dates: start: 20190901, end: 20191130
  2. BIOTIN [Concomitant]
     Active Substance: BIOTIN

REACTIONS (3)
  - Depression [None]
  - Intentional product use issue [None]
  - Suicidal ideation [None]

NARRATIVE: CASE EVENT DATE: 20191009
